FAERS Safety Report 10335823 (Version 1)
Quarter: 2014Q3

REPORT INFORMATION
  Report Type: Spontaneous
  Country: US (occurrence: US)
  Receive Date: 20140723
  Receipt Date: 20140723
  Transmission Date: 20150326
  Serious: No
  Sender: FDA-Public Use
  Company Number: US-BRISTOL-MYERS SQUIBB COMPANY-19124353

PATIENT
  Age: 73 Year
  Sex: Female
  Weight: 71.65 kg

DRUGS (19)
  1. ASCORBIC ACID. [Concomitant]
     Active Substance: ASCORBIC ACID
  2. TRAMADOL [Concomitant]
     Active Substance: TRAMADOL
  3. LISINOPRIL. [Concomitant]
     Active Substance: LISINOPRIL
  4. OMEGA [Concomitant]
  5. METOPROLOL [Concomitant]
     Active Substance: METOPROLOL
  6. CRESTOR [Concomitant]
     Active Substance: ROSUVASTATIN CALCIUM
  7. ESCITALOPRAM [Concomitant]
     Active Substance: ESCITALOPRAM OXALATE
  8. NULEV [Concomitant]
     Active Substance: HYOSCYAMINE SULFATE
  9. PLAQUENIL [Concomitant]
     Active Substance: HYDROXYCHLOROQUINE SULFATE
  10. PROBIOTICA [Concomitant]
     Active Substance: PROBIOTICS NOS
  11. TYLENOL [Concomitant]
     Active Substance: ACETAMINOPHEN
  12. VITAMIN D [Concomitant]
     Active Substance: CHOLECALCIFEROL
  13. COUMADIN [Suspect]
     Active Substance: WARFARIN SODIUM
     Dosage: 5MG PEACH ROUND TAB; EXP:21JUN14;RX#:874562?2.5MG;GREEN ROUND TAB;EXP:21JUN2014;RX#:874561.
  14. RESTASIS [Concomitant]
     Active Substance: CYCLOSPORINE
  15. ATIVAN [Concomitant]
     Active Substance: LORAZEPAM
  16. MIRALAX [Concomitant]
     Active Substance: POLYETHYLENE GLYCOL 3350
  17. VAGIFEM [Concomitant]
     Active Substance: ESTRADIOL
  18. PREDNISONE. [Concomitant]
     Active Substance: PREDNISONE
  19. ACETYLSALICYLIC ACID [Concomitant]
     Active Substance: ASPIRIN

REACTIONS (2)
  - Contusion [Unknown]
  - International normalised ratio fluctuation [Unknown]
